FAERS Safety Report 13156102 (Version 1)
Quarter: 2017Q1

REPORT INFORMATION
  Report Type: Spontaneous
  Country: US (occurrence: US)
  Receive Date: 20170126
  Receipt Date: 20170126
  Transmission Date: 20170428
  Serious: Yes (Death)
  Sender: FDA-Public Use
  Company Number: US-PFIZER INC-2017026342

PATIENT
  Age: 45 Year
  Sex: Female

DRUGS (8)
  1. DEXTROMETHORPHAN [Suspect]
     Active Substance: DEXTROMETHORPHAN
  2. BACLOFEN. [Suspect]
     Active Substance: BACLOFEN
  3. HYDROCODONE BITARTRATE AND ACETAMINOPHEN [Suspect]
     Active Substance: ACETAMINOPHEN\HYDROCODONE BITARTRATE
  4. NAPROXEN. [Suspect]
     Active Substance: NAPROXEN
  5. CODEINE [Suspect]
     Active Substance: CODEINE
  6. AMITRIPTYLINE [Suspect]
     Active Substance: AMITRIPTYLINE
  7. DIAZEPAM. [Suspect]
     Active Substance: DIAZEPAM
  8. GABAPENTIN. [Suspect]
     Active Substance: GABAPENTIN

REACTIONS (1)
  - Completed suicide [Fatal]

NARRATIVE: CASE EVENT DATE: 2015
